FAERS Safety Report 6766563-6 (Version None)
Quarter: 2010Q2

REPORT INFORMATION
  Report Type: 
  Country: None (occurrence: None)
  Receive Date: 20100611
  Receipt Date: 20100601
  Transmission Date: 20101027
  Serious: Yes (Hospitalization, Other)
  Sender: FDA-Public Use
  Company Number: US-ROCHE-699528

PATIENT
  Sex: Female
  Weight: 56.7 kg

DRUGS (8)
  1. AVASTIN [Suspect]
     Route: 042
     Dates: start: 20100215, end: 20100415
  2. ASPIRIN [Concomitant]
  3. CLONIDINE [Concomitant]
  4. DIGOXIN [Concomitant]
  5. LISINOPRIL [Concomitant]
  6. MEGACE [Concomitant]
  7. ZOFRAN [Concomitant]
     Dosage: FREQUENCY: PRN
  8. COMPAZINE [Concomitant]
     Dosage: FREQUENCY: PRN

REACTIONS (2)
  - SPLENIC INFARCTION [None]
  - SPLENIC NECROSIS [None]
